FAERS Safety Report 4924409-2 (Version None)
Quarter: 2006Q1

REPORT INFORMATION
  Report Type: 
  Country: None (occurrence: None)
  Receive Date: 20060221
  Receipt Date: 20060209
  Transmission Date: 20060701
  Serious: Yes (Death, Hospitalization)
  Sender: FDA-Public Use
  Company Number: S06-USA-00510-01

PATIENT
  Age: 75 Year
  Sex: Female

DRUGS (6)
  1. LEXAPRO [Suspect]
     Indication: DEPRESSION
     Dosage: 10 MG QD PO
     Route: 048
     Dates: start: 20060112, end: 20060203
  2. LANTUS [Concomitant]
  3. INSULIN (NOS) [Concomitant]
  4. LASIX [Concomitant]
  5. CHOLESTEROL MEDICATION (NOS) [Concomitant]
  6. CONGESTIVE  HEART FAILURE MEDICATION [Concomitant]

REACTIONS (16)
  - ABDOMINAL PAIN UPPER [None]
  - ANXIETY [None]
  - CARDIAC FAILURE CONGESTIVE [None]
  - CHRONIC OBSTRUCTIVE PULMONARY DISEASE [None]
  - CONDITION AGGRAVATED [None]
  - DISORIENTATION [None]
  - FORMICATION [None]
  - HYPOXIA [None]
  - INSOMNIA [None]
  - MUSCLE TWITCHING [None]
  - NERVOUS SYSTEM DISORDER [None]
  - PLEURAL EFFUSION [None]
  - RESPIRATORY FAILURE [None]
  - RESTLESSNESS [None]
  - STARING [None]
  - TREMOR [None]
